FAERS Safety Report 22623291 (Version 5)
Quarter: 2025Q3

REPORT INFORMATION
  Report Type: Report from Study
  Country: US (occurrence: US)
  Receive Date: 20230621
  Receipt Date: 20250917
  Transmission Date: 20251020
  Serious: Yes (Hospitalization, Other)
  Sender: TAKEDA
  Company Number: US-SHIRE-US201800352

PATIENT
  Sex: Female

DRUGS (4)
  1. HUMAN IMMUNOGLOBULIN G [Suspect]
     Active Substance: HUMAN IMMUNOGLOBULIN G
     Indication: Immunodeficiency common variable
  2. HUMAN IMMUNOGLOBULIN G [Suspect]
     Active Substance: HUMAN IMMUNOGLOBULIN G
     Indication: Primary immunodeficiency syndrome
     Dosage: 5 GRAM, 1/WEEK
  3. HUMAN IMMUNOGLOBULIN G [Suspect]
     Active Substance: HUMAN IMMUNOGLOBULIN G
     Dosage: 5 GRAM, 1/WEEK
  4. HUMAN IMMUNOGLOBULIN G [Suspect]
     Active Substance: HUMAN IMMUNOGLOBULIN G

REACTIONS (11)
  - Meningitis aseptic [Unknown]
  - Pneumonia [Recovered/Resolved]
  - Off label use [Unknown]
  - Inflammation [Unknown]
  - Infectious mononucleosis [Unknown]
  - Cough [Unknown]
  - COVID-19 [Recovering/Resolving]
  - Injection site infection [Recovered/Resolved]
  - Product use issue [Unknown]
  - Insurance issue [Unknown]
  - Pain [Unknown]

NARRATIVE: CASE EVENT DATE: 20210101
